FAERS Safety Report 5062268-0 (Version None)
Quarter: 2006Q3

REPORT INFORMATION
  Report Type: 
  Country: None (occurrence: None)
  Receive Date: 20060703
  Receipt Date: 20051014
  Transmission Date: 20061208
  Serious: No
  Sender: FDA-Public Use
  Company Number: 2005S1010184

PATIENT
  Age: 45 Year
  Sex: Female

DRUGS (9)
  1. CLOZAPINE [Suspect]
     Indication: SCHIZOPHRENIA
     Dosage: SEE IMAGE
     Route: 048
     Dates: start: 20041101
  2. CLOZAPINE [Suspect]
     Indication: SCHIZOPHRENIA
     Dosage: SEE IMAGE
     Route: 048
     Dates: start: 20041101
  3. BENZTROPINE MESYLATE [Concomitant]
  4. DIPHENHYDRAMINE HYDROCHLORIDE [Concomitant]
  5. GLIBENCLAMIDE [Concomitant]
  6. METFORMIN HYDROCHLORIDE [Concomitant]
  7. ATORVASTATIN CALCIUM [Concomitant]
  8. ENALAPRIL MALEATE [Concomitant]
  9. OMEPRAZOLE [Concomitant]

REACTIONS (1)
  - GRANULOCYTOPENIA [None]
